FAERS Safety Report 8916070 (Version 2)
Quarter: 2012Q4

REPORT INFORMATION
  Report Type: 
  Country: US (occurrence: US)
  Receive Date: 20121119
  Receipt Date: 20121128
  Transmission Date: 20130627
  Serious: Yes (Other)
  Sender: FDA-Public Use
  Company Number: US-TEVA-367326USA

PATIENT
  Age: 58 Year
  Sex: Female

DRUGS (1)
  1. ESTRADIOL [Suspect]
     Dosage: 4 Milligram Daily;

REACTIONS (6)
  - Withdrawal syndrome [Unknown]
  - Vaginal haemorrhage [Recovering/Resolving]
  - Muscle spasms [Recovered/Resolved]
  - Endometrial disorder [Unknown]
  - Vaginal discharge [Unknown]
  - Hot flush [Unknown]
